FAERS Safety Report 8455023-2 (Version None)
Quarter: 2012Q2

REPORT INFORMATION
  Report Type: 
  Country: None (occurrence: None)
  Receive Date: 20120614
  Receipt Date: 20120531
  Transmission Date: 20120825
  Serious: Yes (Other)
  Sender: FDA-Public Use
  Company Number: 2012SP006128

PATIENT
  Age: 86 Year
  Sex: Female
  Weight: 65.318 kg

DRUGS (2)
  1. NEXIUM [Concomitant]
  2. CLARITIN-D 24 HOUR [Suspect]
     Indication: PRODUCT USED FOR UNKNOWN INDICATION
     Dosage: ;ONCE; PO
     Route: 048

REACTIONS (2)
  - EYE DISORDER [None]
  - EYE LASER SURGERY [None]
